FAERS Safety Report 8274484-5 (Version None)
Quarter: 2012Q2

REPORT INFORMATION
  Report Type: 
  Country: None (occurrence: None)
  Receive Date: 20120409
  Receipt Date: 20120326
  Transmission Date: 20120825
  Serious: Yes (Hospitalization, Other)
  Sender: FDA-Public Use
  Company Number: 2012MA003997

PATIENT
  Age: 27 Year
  Sex: Male

DRUGS (9)
  1. HALOPERIDOL [Concomitant]
  2. PEROSPIRONE [Concomitant]
  3. QUETIAPINE [Concomitant]
  4. VALPROATE SODIUM [Concomitant]
  5. PHENYTOIN [Concomitant]
  6. CHLORPROMAZINE HYDROCHLORIDE [Suspect]
     Indication: SCHIZOPHRENIA
     Dosage: 200 MG
  7. LITHIUM [Concomitant]
  8. RISPERIDONE [Concomitant]
  9. CARBAMAZEPINE [Concomitant]

REACTIONS (6)
  - ALTERED STATE OF CONSCIOUSNESS [None]
  - NEUROLEPTIC MALIGNANT SYNDROME [None]
  - DRUG INEFFECTIVE [None]
  - WATER INTOXICATION [None]
  - FALL [None]
  - NEUROTOXICITY [None]
